FAERS Safety Report 18433214 (Version 2)
Quarter: 2020Q4

REPORT INFORMATION
  Report Type: Spontaneous
  Country: CA (occurrence: CA)
  Receive Date: 20201028
  Receipt Date: 20201029
  Transmission Date: 20210114
  Serious: Yes (Other)
  Sender: FDA-Public Use
  Company Number: CA-ROCHE-2700592

PATIENT
  Sex: Male

DRUGS (1)
  1. RITUXAN [Suspect]
     Active Substance: RITUXIMAB
     Indication: SJOGREN^S SYNDROME
     Dosage: AT DAY EVERY 3 TO 4 MONTHS
     Route: 042

REACTIONS (3)
  - Axonal neuropathy [Unknown]
  - Off label use [Unknown]
  - Intentional product use issue [Unknown]
